FAERS Safety Report 16808024 (Version 2)
Quarter: 2019Q4

REPORT INFORMATION
  Report Type: Report from Study
  Country: None (occurrence: US)
  Receive Date: 20190916
  Receipt Date: 20191003
  Transmission Date: 20200122
  Serious: Yes (Other)
  Sender: FDA-Public Use
  Company Number: US-ABBVIE-19K-163-2899215-00

PATIENT
  Sex: Female

DRUGS (2)
  1. CELEXA [Concomitant]
     Active Substance: CITALOPRAM HYDROBROMIDE
     Indication: PRODUCT USED FOR UNKNOWN INDICATION
  2. CREON [Suspect]
     Active Substance: PANCRELIPASE AMYLASE\PANCRELIPASE LIPASE\PANCRELIPASE PROTEASE
     Indication: PANCREATITIS
     Dosage: FIVE CAPSULES A DAY
     Route: 048
     Dates: start: 20180715

REACTIONS (5)
  - Hypoacusis [Unknown]
  - Back pain [Unknown]
  - Aphonia [Unknown]
  - Dysphonia [Unknown]
  - Pharyngeal disorder [Not Recovered/Not Resolved]
